FAERS Safety Report 18021690 (Version 1)
Quarter: 2020Q3

REPORT INFORMATION
  Report Type: Spontaneous
  Country: NO (occurrence: NO)
  Receive Date: 20200714
  Receipt Date: 20200714
  Transmission Date: 20201103
  Serious: Yes (Other)
  Sender: FDA-Public Use
  Company Number: NVSC2020NO196178

PATIENT
  Age: 71 Year
  Sex: Male

DRUGS (1)
  1. TRAVATAN [Suspect]
     Active Substance: TRAVOPROST
     Indication: GLAUCOMA
     Dosage: UNK
     Route: 065
     Dates: start: 2018

REACTIONS (2)
  - Psychotic disorder [Not Recovered/Not Resolved]
  - Depression [Not Recovered/Not Resolved]

NARRATIVE: CASE EVENT DATE: 201810
